FAERS Safety Report 8904564 (Version 1)
Quarter: 2012Q4

REPORT INFORMATION
  Report Type: 
  Country: US (occurrence: US)
  Receive Date: 20121110
  Receipt Date: 20121110
  Transmission Date: 20130627
  Serious: No
  Sender: FDA-Public Use
  Company Number: US-009507513-1211USA004235

PATIENT
  Sex: Male

DRUGS (2)
  1. ZETIA [Suspect]
     Dosage: UNK
     Dates: start: 2012
  2. LIPITOR [Suspect]
     Dosage: UNK
     Dates: start: 2012

REACTIONS (2)
  - Night sweats [Unknown]
  - Dizziness [Unknown]
